FAERS Safety Report 24114787 (Version 1)
Quarter: 2024Q3

REPORT INFORMATION
  Report Type: Report from Study
  Country: CA (occurrence: CA)
  Receive Date: 20240721
  Receipt Date: 20240721
  Transmission Date: 20241016
  Serious: Yes (Other)
  Sender: DR REDDYS
  Company Number: CA-E2BLSMVVAL-CLI/CAN/24/0010368

PATIENT
  Age: 66 Year
  Sex: Female

DRUGS (1)
  1. ZOLEDRONIC ACID [Suspect]
     Active Substance: ZOLEDRONIC ACID
     Indication: Osteoporosis
     Dosage: ONCE A YEAR, LAST INFUSION WAS ON 08-MAY-2023.
     Dates: start: 20220504, end: 20230508

REACTIONS (2)
  - Malignant melanoma [Unknown]
  - Goitre [Unknown]
